FAERS Safety Report 5124885-9 (Version None)
Quarter: 2006Q4

REPORT INFORMATION
  Report Type: 
  Country: None (occurrence: None)
  Receive Date: 20061011
  Receipt Date: 20060928
  Transmission Date: 20070319
  Serious: Yes (Hospitalization)
  Sender: FDA-Public Use
  Company Number: JP-AMGEN-US195349

PATIENT
  Sex: Male

DRUGS (18)
  1. CINACALCET [Suspect]
     Indication: HYPERPARATHYROIDISM SECONDARY
     Route: 048
     Dates: start: 20040622
  2. EPOETIN BETA [Concomitant]
     Dates: start: 20060103
  3. MAXACALCITOL [Concomitant]
     Dates: start: 20050903
  4. ASCORBIC ACID [Concomitant]
     Dates: start: 20060411
  5. SEVELAMER HCL [Concomitant]
  6. CALCIUM CARBONATE [Concomitant]
     Dates: start: 20050513
  7. NITROGLYCERIN [Concomitant]
     Dates: start: 20050421
  8. LOSARTAN POTASSIUM [Concomitant]
  9. CALCIUM POLYSTYRENE SULFONATE [Concomitant]
  10. HYDROXYZINE PAMOATE [Concomitant]
  11. LANSOPRAZOLE [Concomitant]
     Dates: start: 20050128
  12. METILDIGOXIN [Concomitant]
  13. DROXIDOPA [Concomitant]
     Dates: start: 20051217
  14. HEPARINOID [Concomitant]
  15. BETAMETHASONE DIPROPIONATE [Concomitant]
  16. SODIUM CHLORIDE [Concomitant]
     Dates: start: 20051215
  17. GENTAMICIN SULFATE [Concomitant]
     Dates: start: 20060715
  18. ENZYMES [Concomitant]

REACTIONS (1)
  - ARTERIOSCLEROSIS OBLITERANS [None]
